FAERS Safety Report 8348836-9 (Version None)
Quarter: 2012Q2

REPORT INFORMATION
  Report Type: 
  Country: None (occurrence: None)
  Receive Date: 20120508
  Receipt Date: 20120502
  Transmission Date: 20120825
  Serious: Yes (Congenital Anomaly, Other)
  Sender: FDA-Public Use
  Company Number: A0976227A

PATIENT
  Sex: Male

DRUGS (1)
  1. ASPIRIN + CAFFEINE + PARACETAMOL (FORMULATION UNKNOWN) (ACETAMINOPHEN [Suspect]

REACTIONS (2)
  - BLOOD DISORDER [None]
  - HAEMORRHAGE [None]
